FAERS Safety Report 15658811 (Version 2)
Quarter: 2019Q1

REPORT INFORMATION
  Report Type: Report from Study
  Country: None (occurrence: US)
  Receive Date: 20181126
  Receipt Date: 20190125
  Transmission Date: 20190417
  Serious: Yes (Other)
  Sender: FDA-Public Use
  Company Number: US-ABBVIE-18K-163-2564320-00

PATIENT
  Age: 65 Year
  Sex: Male

DRUGS (22)
  1. VITAMIN C [Concomitant]
     Active Substance: ASCORBIC ACID
     Indication: HYPOVITAMINOSIS
  2. IMURAN [Suspect]
     Active Substance: AZATHIOPRINE
     Indication: PRODUCT USED FOR UNKNOWN INDICATION
     Route: 065
  3. MAGNESIUM [Concomitant]
     Active Substance: MAGNESIUM
     Indication: MUSCLE SPASMS
     Dosage: AS NEEDED
  4. VITAMIN B12 [Concomitant]
     Active Substance: CYANOCOBALAMIN
     Indication: HYPOVITAMINOSIS
  5. PREDNISONE. [Concomitant]
     Active Substance: PREDNISONE
     Indication: CROHN^S DISEASE
  6. NEOMYCIN. [Concomitant]
     Active Substance: NEOMYCIN
     Indication: GASTROINTESTINAL BACTERIAL OVERGROWTH
  7. FOLIC ACID. [Concomitant]
     Active Substance: FOLIC ACID
     Indication: HYPOVITAMINOSIS
  8. ELIQUIS [Concomitant]
     Active Substance: APIXABAN
     Indication: THROMBOSIS
  9. VITAMIN D3 [Concomitant]
     Active Substance: CHOLECALCIFEROL
     Indication: HYPOVITAMINOSIS
  10. NORTRIPTYLINE HCL [Concomitant]
     Active Substance: NORTRIPTYLINE HYDROCHLORIDE
     Indication: ABDOMINAL PAIN
  11. NORTRIPTYLINE HCL [Concomitant]
     Active Substance: NORTRIPTYLINE HYDROCHLORIDE
     Indication: MIGRAINE
  12. MELATONIN [Concomitant]
     Active Substance: MELATONIN
     Indication: SLEEP DISORDER
  13. IRON [Concomitant]
     Active Substance: IRON
     Indication: HYPOVITAMINOSIS
  14. FLOMAX [Concomitant]
     Active Substance: TAMSULOSIN HYDROCHLORIDE
     Indication: URINARY TRACT DISORDER
  15. ENTOCORT [Suspect]
     Active Substance: BUDESONIDE
     Indication: PRODUCT USED FOR UNKNOWN INDICATION
     Route: 065
  16. VSL#3 DS [Concomitant]
     Indication: MIGRAINE
  17. RIZATRIPTAN. [Concomitant]
     Active Substance: RIZATRIPTAN
     Indication: MIGRAINE
  18. VITAMIN E [Concomitant]
     Active Substance: .ALPHA.-TOCOPHEROL
     Indication: DRY SKIN
  19. HUMIRA [Suspect]
     Active Substance: ADALIMUMAB
     Indication: CROHN^S DISEASE
     Route: 058
     Dates: start: 201806
  20. PROBIOTIC [Concomitant]
     Active Substance: PROBIOTICS NOS
     Indication: MIGRAINE
  21. ZINC. [Concomitant]
     Active Substance: ZINC
     Indication: HYPOVITAMINOSIS
  22. HYOSCYAMINE. [Concomitant]
     Active Substance: HYOSCYAMINE
     Indication: CROHN^S DISEASE

REACTIONS (18)
  - Vomiting [Unknown]
  - Flatulence [Unknown]
  - Hypoaesthesia [Unknown]
  - Gastrointestinal disorder [Unknown]
  - Asthenia [Unknown]
  - Oedema [Recovered/Resolved]
  - General physical health deterioration [Unknown]
  - Body temperature increased [Unknown]
  - Intestinal stenosis [Unknown]
  - Diarrhoea [Recovering/Resolving]
  - Malnutrition [Unknown]
  - Blood pressure abnormal [Unknown]
  - Nausea [Unknown]
  - Renal artery thrombosis [Unknown]
  - Insomnia [Unknown]
  - Nerve compression [Unknown]
  - Abdominal pain [Unknown]
  - Abdominal distension [Unknown]

NARRATIVE: CASE EVENT DATE: 2018
